FAERS Safety Report 10330918 (Version 8)
Quarter: 2015Q2

REPORT INFORMATION
  Report Type: Report from Study
  Country: PT (occurrence: PT)
  Receive Date: 20140722
  Receipt Date: 20150414
  Transmission Date: 20150821
  Serious: Yes (Hospitalization)
  Sender: FDA-Public Use
  Company Number: PT-ROCHE-1435581

PATIENT
  Age: 55 Year
  Sex: Female
  Weight: 90.7 kg

DRUGS (13)
  1. TRAMADOL [Concomitant]
     Active Substance: TRAMADOL
     Route: 065
     Dates: start: 20140514
  2. FOLIC ACID. [Concomitant]
     Active Substance: FOLIC ACID
     Route: 065
     Dates: start: 20131113
  3. PREDNISOLONE. [Concomitant]
     Active Substance: PREDNISOLONE
     Route: 048
     Dates: start: 20140108
  4. IPRATROPIUM BROMIDE. [Concomitant]
     Active Substance: IPRATROPIUM BROMIDE
     Dosage: 4.00 PUFFS
     Route: 065
     Dates: start: 20140714, end: 20141015
  5. DIAZEPAM. [Concomitant]
     Active Substance: DIAZEPAM
     Route: 065
  6. ETODOLAC. [Concomitant]
     Active Substance: ETODOLAC
     Route: 048
     Dates: start: 20140514
  7. TOCILIZUMAB [Suspect]
     Active Substance: TOCILIZUMAB
     Indication: RHEUMATOID ARTHRITIS
     Dosage: DATE OF LAST DOSE PRIOR TO SAE: 09/JUL/2014
     Route: 058
     Dates: start: 20140625, end: 20140714
  8. ISONIAZIDE [Concomitant]
     Active Substance: ISONIAZID
     Route: 048
     Dates: start: 20140501
  9. METHOTREXATE [Concomitant]
     Active Substance: METHOTREXATE
     Route: 058
     Dates: start: 20140319, end: 20140929
  10. MAPROTILINE [Concomitant]
     Active Substance: MAPROTILINE
     Route: 065
     Dates: start: 2004
  11. METHOTREXATE [Concomitant]
     Active Substance: METHOTREXATE
     Route: 065
     Dates: start: 20141021
  12. MIRABEGRON [Concomitant]
     Active Substance: MIRABEGRON
     Route: 065
     Dates: start: 201404
  13. PARACETAMOL [Concomitant]
     Active Substance: ACETAMINOPHEN
     Route: 065
     Dates: start: 20140514

REACTIONS (2)
  - Pneumonia [Recovered/Resolved]
  - Pulmonary embolism [Recovered/Resolved with Sequelae]

NARRATIVE: CASE EVENT DATE: 20140714
